FAERS Safety Report 23635395 (Version 5)
Quarter: 2024Q4

REPORT INFORMATION
  Report Type: Spontaneous
  Country: US (occurrence: US)
  Receive Date: 20240315
  Receipt Date: 20241015
  Transmission Date: 20250114
  Serious: No
  Sender: BRISTOL-MYERS SQUIBB COMPANY
  Company Number: US-BRISTOL-MYERS SQUIBB COMPANY-2024-041807

PATIENT
  Age: 66 Year
  Sex: Male

DRUGS (1)
  1. REVLIMID [Suspect]
     Active Substance: LENALIDOMIDE
     Indication: Plasma cell myeloma
     Route: 048

REACTIONS (6)
  - Flatulence [Recovering/Resolving]
  - Arthralgia [Recovered/Resolved]
  - Red blood cell count decreased [Unknown]
  - Foot deformity [Unknown]
  - Nasopharyngitis [Unknown]
  - Productive cough [Unknown]
